FAERS Safety Report 7839737 (Version 11)
Quarter: 2012Q4

REPORT INFORMATION
  Report Type: Report from Study
  Country: JP (occurrence: JP)
  Receive Date: 20110303
  Receipt Date: 20121203
  Transmission Date: 20130627
  Serious: Yes (Hospitalization, Other)
  Sender: FDA-Public Use
  Company Number: JP-ABBOTT-11P-087-0707000-00

PATIENT
  Age: 54 Year
  Sex: Female
  Weight: 54 kg

DRUGS (20)
  1. HUMIRA [Suspect]
     Indication: RHEUMATOID ARTHRITIS
     Route: 058
     Dates: start: 20091126
  2. HUMIRA [Suspect]
     Dates: end: 20101112
  3. HUMIRA [Suspect]
     Dates: start: 20101126, end: 20101224
  4. HUMIRA [Suspect]
     Dates: start: 20110121, end: 20110121
  5. RHEUMATREX [Suspect]
     Indication: PRODUCT USED FOR UNKNOWN INDICATION
     Dosage: 6 mg/week
     Dates: start: 20091126, end: 20100414
  6. RHEUMATREX [Suspect]
     Dosage: 8 mg/week
     Dates: start: 20100415, end: 20110223
  7. FOLIC ACID [Concomitant]
     Indication: PROPHYLAXIS
     Route: 048
     Dates: start: 20091128, end: 20110225
  8. FOLIC ACID [Concomitant]
     Indication: ADVERSE DRUG REACTION
  9. MELOXICAM [Concomitant]
     Indication: RHEUMATOID ARTHRITIS
     Route: 048
     Dates: start: 20090925, end: 20110826
  10. MELOXICAM [Concomitant]
     Dates: start: 20110729, end: 20110826
  11. OMEPRAZOLE [Concomitant]
     Indication: PROPHYLAXIS AGAINST GASTROINTESTINAL ULCER
     Route: 048
     Dates: start: 20091024
  12. OMEPRAZOLE [Concomitant]
     Indication: PROPHYLAXIS AGAINST GASTROINTESTINAL ULCER
     Route: 048
     Dates: start: 20110729
  13. BUCILLAMINE [Concomitant]
     Indication: RHEUMATOID ARTHRITIS
     Route: 048
     Dates: start: 20110221, end: 20110318
  14. BUCILLAMINE [Concomitant]
     Dates: start: 20110319, end: 20110701
  15. BUCILLAMINE [Concomitant]
     Dates: start: 20110702
  16. PREDNISOLONE [Concomitant]
     Indication: RHEUMATOID ARTHRITIS
     Route: 048
     Dates: start: 20110221, end: 20110318
  17. PREDNISOLONE [Concomitant]
     Dates: start: 20110319, end: 20110506
  18. PREDNISOLONE [Concomitant]
     Dates: start: 20110507, end: 20111021
  19. PREDNISOLONE [Concomitant]
     Dates: start: 20111021
  20. SALAZOSULFAPYRIDINE [Concomitant]
     Indication: RHEUMATOID ARTHRITIS

REACTIONS (5)
  - Skin mass [Unknown]
  - Lip and/or oral cavity cancer [Unknown]
  - Paranasal sinus neoplasm [Unknown]
  - Scar [Recovered/Resolved with Sequelae]
  - Erythema [Unknown]
